FAERS Safety Report 6905926-2 (Version None)
Quarter: 2010Q3

REPORT INFORMATION
  Report Type: 
  Country: None (occurrence: None)
  Receive Date: 20100804
  Receipt Date: 20100714
  Transmission Date: 20110219
  Serious: Yes (Hospitalization)
  Sender: FDA-Public Use
  Company Number: US-ROCHE-718372

PATIENT
  Sex: Male

DRUGS (4)
  1. PEGINTERFERON ALFA-2A [Suspect]
     Indication: HEPATITIS C
     Route: 065
     Dates: start: 20090701, end: 20091225
  2. PEGINTERFERON ALFA-2A [Suspect]
     Route: 065
     Dates: start: 20100402, end: 20100615
  3. RIBAVIRIN [Suspect]
     Indication: HEPATITIS C
     Route: 065
     Dates: start: 20090701, end: 20091225
  4. RIBAVIRIN [Suspect]
     Route: 065
     Dates: start: 20100402, end: 20100615

REACTIONS (1)
  - SPINAL CORD NEOPLASM [None]
